FAERS Safety Report 5549774-7 (Version None)
Quarter: 2007Q4

REPORT INFORMATION
  Report Type: 
  Country: None (occurrence: None)
  Receive Date: 20071212
  Receipt Date: 20070510
  Transmission Date: 20080405
  Serious: No
  Sender: FDA-Public Use
  Company Number: US-AMGEN-KDL222427

PATIENT
  Sex: Female

DRUGS (7)
  1. ENBREL [Suspect]
     Dates: start: 20030127
  2. HYDROCHLOROTHIAZIDE [Concomitant]
  3. DIOVAN [Concomitant]
  4. PREVACID [Concomitant]
  5. DARVOCET [Concomitant]
  6. ASPIRIN [Concomitant]
  7. ZETIA [Concomitant]

REACTIONS (5)
  - BURSITIS [None]
  - IMPAIRED HEALING [None]
  - LACERATION [None]
  - RHEUMATOID ARTHRITIS [None]
  - WOUND COMPLICATION [None]
